FAERS Safety Report 4699144-9 (Version None)
Quarter: 2005Q2

REPORT INFORMATION
  Report Type: 
  Country: None (occurrence: None)
  Receive Date: 20050623
  Receipt Date: 20050623
  Transmission Date: 20051028
  Serious: Yes (Life-Threatening, Hospitalization)
  Sender: FDA-Public Use
  Company Number: None

PATIENT
  Sex: Female

DRUGS (1)
  1. OMNISCAN [Suspect]
     Indication: SCAN WITH CONTRAST
     Dosage: 150CC     INTRAVENOU
     Route: 042
     Dates: start: 20050418, end: 20050418

REACTIONS (2)
  - CONTRAST MEDIA REACTION [None]
  - HYPERSENSITIVITY [None]
